FAERS Safety Report 18486671 (Version 1)
Quarter: 2020Q4

REPORT INFORMATION
  Report Type: Spontaneous
  Country: GB (occurrence: GB)
  Receive Date: 20201110
  Receipt Date: 20201110
  Transmission Date: 20210114
  Serious: Yes (Hospitalization, Other)
  Sender: FDA-Public Use
  Company Number: GB-SAMSUNG BIOEPIS-SB-2020-33813

PATIENT
  Age: 42 Year
  Sex: Female
  Weight: 188 kg

DRUGS (3)
  1. PERTUZUMAB. [Suspect]
     Active Substance: PERTUZUMAB
     Indication: BREAST CANCER FEMALE
     Route: 042
     Dates: start: 20201001, end: 20201001
  2. COCODAMOL [Concomitant]
     Active Substance: ACETAMINOPHEN\CODEINE PHOSPHATE
     Indication: PRODUCT USED FOR UNKNOWN INDICATION
     Dosage: UNKNOWN
     Route: 065
  3. TRASTUZUMAB. [Suspect]
     Active Substance: TRASTUZUMAB
     Indication: BREAST CANCER FEMALE
     Route: 042
     Dates: start: 20201001, end: 20201001

REACTIONS (5)
  - Chills [Recovered/Resolved]
  - Pyrexia [Recovered/Resolved]
  - Peripheral coldness [Unknown]
  - Vomiting [Recovered/Resolved]
  - Hyperventilation [Unknown]

NARRATIVE: CASE EVENT DATE: 20201001
